FAERS Safety Report 6334661-7 (Version None)
Quarter: 2009Q3

REPORT INFORMATION
  Report Type: 
  Country: None (occurrence: None)
  Receive Date: 20090831
  Receipt Date: 20090824
  Transmission Date: 20100115
  Serious: Yes (Hospitalization)
  Sender: FDA-Public Use
  Company Number: JP-BAYER-200912357BYL

PATIENT
  Age: 77 Year
  Sex: Female
  Weight: 39 kg

DRUGS (5)
  1. NEXAVAR [Suspect]
     Indication: HEPATIC NEOPLASM MALIGNANT
     Dosage: TOTAL DAILY DOSE: 800 MG  UNIT DOSE: 200 MG
     Route: 048
     Dates: start: 20090609, end: 20090629
  2. MOHRUS TAPE [Concomitant]
     Dosage: SINCE BEFORE ADMINISTRATION
     Route: 062
  3. MAGMITT [Concomitant]
     Dosage: TOTAL DAILY DOSE: 1500 MG  UNIT DOSE: 250 MG
     Route: 048
  4. LENDORMIN [Concomitant]
     Dosage: TOTAL DAILY DOSE: 0.25 MG  UNIT DOSE: 0.25 MG
     Route: 048
  5. GATIFLOXACIN [Concomitant]
     Route: 031
     Dates: start: 20090623, end: 20090629

REACTIONS (4)
  - HEPATIC ENCEPHALOPATHY [None]
  - HEPATIC FUNCTION ABNORMAL [None]
  - PALMAR-PLANTAR ERYTHRODYSAESTHESIA SYNDROME [None]
  - RASH [None]
